FAERS Safety Report 15736251 (Version 3)
Quarter: 2019Q2

REPORT INFORMATION
  Report Type: Spontaneous
  Country: US (occurrence: US)
  Receive Date: 20181218
  Receipt Date: 20190416
  Transmission Date: 20190711
  Serious: No
  Sender: FDA-Public Use
  Company Number: US-PFIZER INC-2018514083

PATIENT
  Age: 62 Year
  Sex: Female
  Weight: 54.43 kg

DRUGS (2)
  1. SILDENAFIL CITRATE. [Suspect]
     Active Substance: SILDENAFIL CITRATE
     Indication: RAYNAUD^S PHENOMENON
     Dosage: 25 MG (SUPPOSED TO BE TAKING 3X A DAY BUT SHE WAS ONLY TAKING ONCE A DAY)
     Route: 048
  2. SILDENAFIL CITRATE. [Suspect]
     Active Substance: SILDENAFIL CITRATE
     Indication: SCLERODERMA

REACTIONS (5)
  - Intentional product use issue [Unknown]
  - Tinnitus [Unknown]
  - Pain [Unknown]
  - Drug ineffective [Unknown]
  - Product use in unapproved indication [Unknown]
